FAERS Safety Report 11302885 (Version 1)
Quarter: 2015Q3

REPORT INFORMATION
  Report Type: Spontaneous
  Country: US (occurrence: None)
  Receive Date: 20150723
  Receipt Date: 20150723
  Transmission Date: 20151125
  Serious: Yes (Death)
  Sender: FDA-Public Use
  Company Number: None

PATIENT
  Age: 63 Year
  Sex: Male
  Weight: 57.1 kg

DRUGS (1)
  1. BEVACIZUMA (RHUMAB VEGF) [Suspect]
     Active Substance: BEVACIZUMAB
     Dates: start: 20150714

REACTIONS (4)
  - Mental status changes [None]
  - Dyspnoea [None]
  - Hyperhidrosis [None]
  - Fall [None]

NARRATIVE: CASE EVENT DATE: 20150721
